FAERS Safety Report 9251283 (Version 1)
Quarter: 2013Q2

REPORT INFORMATION
  Report Type: Spontaneous
  Country: US (occurrence: US)
  Receive Date: 20130423
  Receipt Date: 20130423
  Transmission Date: 20140414
  Serious: Yes (Hospitalization)
  Sender: FDA-Public Use
  Company Number: US-BRACCO-009346

PATIENT
  Age: 51 Year
  Sex: Male
  Weight: 83 kg

DRUGS (12)
  1. MULTIHANCE [Suspect]
     Indication: ARTHROGRAM
     Dosage: 0.1 ML OF MULTIHANCE WAS DILUTED IN 10 ML OF NORMAL SALINE AND INJECTED INTO THE RIGHT SHOULDER
     Route: 014
     Dates: start: 20091121, end: 20091121
  2. ISOVUE-200 [Concomitant]
     Dosage: PATIENT ADMINISTERED 3 ML IN THE LEFT SHOULDER
     Route: 014
     Dates: start: 20091121, end: 20091121
  3. MULTIHANCE [Suspect]
     Dosage: 0.10 ML OF MULTIHANCE WAS DILUTED IN 10 ML OF NORMAL SALINE AND INJECTED IN THE LEFT SHOULDER
     Route: 013
     Dates: start: 20091121, end: 20091121
  4. ISOVUE-200 [Concomitant]
     Dosage: PATIENT ADMINISTERED 3 ML OF ISOVUE IN THE RIGHT SHOULDER
     Route: 014
     Dates: start: 20091121, end: 20091121
  5. ALEVE [Concomitant]
     Dosage: 2 TABLETS TWICE A DAY
     Dates: end: 20091209
  6. LUNESTA [Concomitant]
     Dosage: ALTERNATES WITH AMBIEN AT BEDTIME AS NEEDED.
     Route: 048
  7. VICODIN [Concomitant]
  8. LISINOPRIL [Concomitant]
     Route: 048
  9. MEDROL [Concomitant]
  10. AMBIEN [Concomitant]
     Dosage: ALTERNATES WITH LUNESTA TAKEN AT BEDTIME AS NEEDED.
     Route: 048
  11. PERCOCET [Concomitant]
  12. ANDROGEL [Concomitant]
     Dosage: 2 PACKS DAILY
     Route: 061

REACTIONS (1)
  - Septic arthritis streptococcal [Recovering/Resolving]
